FAERS Safety Report 13403433 (Version 1)
Quarter: 2017Q2

REPORT INFORMATION
  Report Type: Spontaneous
  Country: US (occurrence: US)
  Receive Date: 20170405
  Receipt Date: 20170405
  Transmission Date: 20170830
  Serious: No
  Sender: FDA-Public Use
  Company Number: US-009507513-1108USA02412B1

PATIENT
  Sex: Female

DRUGS (6)
  1. RETROVIR [Suspect]
     Active Substance: ZIDOVUDINE
     Indication: PERSISTENT GENERALISED LYMPHADENOPATHY
     Dosage: 1 MG/KG/HR
     Route: 064
     Dates: start: 20110411, end: 20110412
  2. ISENTRESS [Suspect]
     Active Substance: RALTEGRAVIR POTASSIUM
     Indication: PERSISTENT GENERALISED LYMPHADENOPATHY
  3. RETROVIR [Suspect]
     Active Substance: ZIDOVUDINE
     Indication: ACUTE HIV INFECTION
     Dosage: 2 MG/KG/HR
     Route: 064
     Dates: start: 20110411, end: 20110411
  4. ISENTRESS [Suspect]
     Active Substance: RALTEGRAVIR POTASSIUM
     Indication: ACUTE HIV INFECTION
     Dosage: 800 MG, QD
     Route: 064
     Dates: start: 20101101
  5. TRUVADA [Suspect]
     Active Substance: EMTRICITABINE\TENOFOVIR DISOPROXIL FUMARATE
     Indication: PERSISTENT GENERALISED LYMPHADENOPATHY
  6. TRUVADA [Suspect]
     Active Substance: EMTRICITABINE\TENOFOVIR DISOPROXIL FUMARATE
     Indication: ACUTE HIV INFECTION
     Dosage: 1 DF, QD
     Route: 064
     Dates: start: 20101101

REACTIONS (1)
  - Foetal exposure during pregnancy [Recovered/Resolved]
